FAERS Safety Report 6863977 (Version 5)
Quarter: 2013Q1

REPORT INFORMATION
  Report Type: Spontaneous
  Country: GB (occurrence: GB)
  Receive Date: 20081222
  Receipt Date: 20130111
  Transmission Date: 20140127
  Serious: Yes (Other)
  Sender: FDA-Public Use
  Company Number: PHHY2008GB31929

PATIENT
  Age: 30 None
  Sex: Male

DRUGS (3)
  1. CLOZARIL [Suspect]
     Indication: SCHIZOPHRENIA
     Route: 048
     Dates: start: 20071022, end: 20081211
  2. FLUCLOXACILLIN [Suspect]
     Indication: OSTEOMYELITIS CHRONIC
     Dates: end: 20081222
  3. METRONIDAZOLE [Concomitant]

REACTIONS (4)
  - Osteomyelitis chronic [Unknown]
  - White blood cell count decreased [Not Recovered/Not Resolved]
  - Neutrophil count decreased [Not Recovered/Not Resolved]
  - Limb injury [Unknown]
